FAERS Safety Report 25891925 (Version 1)
Quarter: 2025Q4

REPORT INFORMATION
  Report Type: Spontaneous
  Country: EU (occurrence: EU)
  Receive Date: 20251007
  Receipt Date: 20251007
  Transmission Date: 20260117
  Serious: Yes (Hospitalization)
  Sender: BIOMARIN
  Company Number: EU-BIOMARINAP-AT-2025-169185

PATIENT
  Age: 4 Year
  Sex: Female
  Weight: 14.8 kg

DRUGS (1)
  1. NAGLAZYME [Suspect]
     Active Substance: GALSULFASE
     Indication: Mucopolysaccharidosis VI
     Dosage: UNK

REACTIONS (2)
  - Nasal polyps [Recovered/Resolved]
  - Infection [Recovered/Resolved]
